FAERS Safety Report 7374831-2 (Version None)
Quarter: 2011Q1

REPORT INFORMATION
  Report Type: 
  Country: None (occurrence: None)
  Receive Date: 20110325
  Receipt Date: 20110321
  Transmission Date: 20110831
  Serious: Yes (Death, Hospitalization)
  Sender: FDA-Public Use
  Company Number: US-ELI_LILLY_AND_COMPANY-US201101006203

PATIENT
  Age: 30 Year
  Sex: Female
  Weight: 80.272 kg

DRUGS (6)
  1. SERTRALINE HYDROCHLORIDE [Concomitant]
  2. METHAMPHETAMINE [Concomitant]
  3. MORPHINE SULFATE [Concomitant]
  4. ZYPREXA RELPREVV [Suspect]
     Indication: SCHIZOAFFECTIVE DISORDER
     Dosage: 405 MG, MONTHLY (1/M)
     Route: 030
     Dates: start: 20110115
  5. LITHIUM [Concomitant]
  6. COCAINE [Concomitant]

REACTIONS (4)
  - MEDICATION ERROR [None]
  - TOXICITY TO VARIOUS AGENTS [None]
  - MECHANICAL VENTILATION [None]
  - LOSS OF CONSCIOUSNESS [None]
